FAERS Safety Report 9274778 (Version 1)
Quarter: 2013Q2

REPORT INFORMATION
  Report Type: Spontaneous
  Country: US (occurrence: None)
  Receive Date: 20130501
  Receipt Date: 20130501
  Transmission Date: 20140414
  Serious: Yes (Other)
  Sender: FDA-Public Use
  Company Number: None

PATIENT
  Age: 21 Year
  Sex: Male

DRUGS (2)
  1. RISPERDAL [Suspect]
     Indication: AUTISM
     Dosage: 1
     Route: 048
     Dates: start: 201002
  2. RISPERDAL [Suspect]
     Indication: TIC
     Dosage: 1
     Route: 048

REACTIONS (1)
  - Abnormal behaviour [None]
